FAERS Safety Report 12822747 (Version 1)
Quarter: 2016Q4

REPORT INFORMATION
  Report Type: Spontaneous
  Country: US (occurrence: US)
  Receive Date: 20161006
  Receipt Date: 20161006
  Transmission Date: 20170207
  Serious: No
  Sender: FDA-Public Use
  Company Number: US-AMGEN-USASP2016128090

PATIENT
  Age: 74 Year
  Sex: Female

DRUGS (1)
  1. PROLIA [Suspect]
     Active Substance: DENOSUMAB
     Indication: OSTEOPOROSIS
     Dosage: UNK
     Route: 065
     Dates: start: 2013

REACTIONS (15)
  - Spinal disorder [Unknown]
  - Impaired driving ability [Unknown]
  - Dysphonia [Unknown]
  - Tooth loss [Not Recovered/Not Resolved]
  - Tooth disorder [Unknown]
  - Impaired quality of life [Unknown]
  - Nasopharyngitis [Unknown]
  - Asthenia [Unknown]
  - Feeling abnormal [Unknown]
  - Bedridden [Unknown]
  - Bone density abnormal [Unknown]
  - Bone disorder [Unknown]
  - Hypophagia [Unknown]
  - Wrong technique in product usage process [Unknown]
  - Pain [Unknown]

NARRATIVE: CASE EVENT DATE: 2013
